FAERS Safety Report 5317063-1 (Version None)
Quarter: 2007Q2

REPORT INFORMATION
  Report Type: 
  Country: None (occurrence: None)
  Receive Date: 20070504
  Receipt Date: 20070502
  Transmission Date: 20071010
  Serious: Yes (Hospitalization)
  Sender: FDA-Public Use
  Company Number: US-ASTRAZENECA-2007UW09396

PATIENT

DRUGS (1)
  1. SEROQUEL [Suspect]
     Dosage: OVERDOSE ON 5600 MG
     Route: 048

REACTIONS (3)
  - ELECTROCARDIOGRAM QT INTERVAL ABNORMAL [None]
  - HYPOKALAEMIA [None]
  - OVERDOSE [None]
